FAERS Safety Report 7585752-4 (Version None)
Quarter: 2011Q2

REPORT INFORMATION
  Report Type: 
  Country: None (occurrence: None)
  Receive Date: 20110624
  Receipt Date: 20110609
  Transmission Date: 20111010
  Serious: Yes (Other)
  Sender: FDA-Public Use
  Company Number: 2011MA006969

PATIENT
  Sex: Female

DRUGS (2)
  1. DIAZEPAM [Suspect]
     Indication: DIZZINESS
     Dosage: 175 MG; ;PO
     Route: 048
  2. LAMOTRIGINE [Suspect]
     Indication: EPILEPSY
     Dates: start: 20090901

REACTIONS (9)
  - CONTUSION [None]
  - HAEMORRHAGE [None]
  - ERYTHEMA [None]
  - DIZZINESS [None]
  - INSOMNIA [None]
  - OEDEMA PERIPHERAL [None]
  - EPISTAXIS [None]
  - ANXIETY [None]
  - BALANCE DISORDER [None]
